FAERS Safety Report 9984867 (Version 1)
Quarter: 2014Q1

REPORT INFORMATION
  Report Type: Report from Study
  Country: US (occurrence: US)
  Receive Date: 20140307
  Receipt Date: 20140307
  Transmission Date: 20141002
  Serious: No
  Sender: FDA-Public Use
  Company Number: US-ABBVIE-13P-163-1183918-00

PATIENT
  Age: 63 Year
  Sex: Female

DRUGS (14)
  1. HUMIRA [Suspect]
     Indication: RHEUMATOID ARTHRITIS
     Dates: start: 20120815
  2. JINTELI [Concomitant]
     Indication: HORMONE REPLACEMENT THERAPY
     Dosage: 28 1MG/ 5MCG
  3. CYTOMEL [Concomitant]
     Indication: HYPOTHYROIDISM
  4. LEVOTHYROXINE [Concomitant]
     Indication: HYPOTHYROIDISM
  5. METOPROLOL SUCCINATE [Concomitant]
     Indication: ATRIAL FIBRILLATION
     Dosage: IN THE MORNING
  6. FLECAINIDE [Concomitant]
     Indication: ATRIAL FIBRILLATION
  7. DITROPAN [Concomitant]
     Indication: INCONTINENCE
     Dosage: IN THE EVENING
  8. SINGULAIR [Concomitant]
     Indication: HYPERSENSITIVITY
     Dosage: AT NIGHT; FROM AUGUST THROUGH JUNE
  9. REQUIP [Concomitant]
     Indication: RESTLESS LEGS SYNDROME
     Dosage: AT BEDTIME
  10. CELEBREX [Concomitant]
     Indication: RHEUMATOID ARTHRITIS
     Dosage: 1 PILL IN THE MORNING
  11. FOLIC ACID [Concomitant]
     Indication: PRODUCT USED FOR UNKNOWN INDICATION
     Dosage: AT BEDTIME
  12. LISINOPRIL [Concomitant]
     Indication: BLOOD PRESSURE
  13. NORVASC [Concomitant]
     Indication: BLOOD PRESSURE
     Dosage: IN THE MORNING
  14. PRISTIQ [Concomitant]
     Indication: DEPRESSION
     Dosage: AT BEDTIME
     Route: 048

REACTIONS (3)
  - Sleep apnoea syndrome [Recovering/Resolving]
  - Blood cholesterol increased [Unknown]
  - Fatigue [Recovering/Resolving]
